FAERS Safety Report 11302922 (Version 7)
Quarter: 2016Q2

REPORT INFORMATION
  Report Type: Spontaneous
  Country: US (occurrence: US)
  Receive Date: 20150723
  Receipt Date: 20160517
  Transmission Date: 20160815
  Serious: Yes (Hospitalization, Other)
  Sender: FDA-Public Use
  Company Number: US-PFIZER INC-2015243778

PATIENT
  Age: 73 Year
  Sex: Female
  Weight: 49 kg

DRUGS (5)
  1. VFEND [Suspect]
     Active Substance: VORICONAZOLE
     Indication: LUNG INFECTION
     Dosage: 500 MG, DAILY
  2. OXYCODONE [Concomitant]
     Active Substance: OXYCODONE
     Dosage: UNK
  3. MORPHINE [Concomitant]
     Active Substance: MORPHINE
     Indication: PAIN
     Dosage: UNK
  4. PREDNISONE. [Concomitant]
     Active Substance: PREDNISONE
     Indication: PAIN
     Dosage: 5 MG, 1X/DAY
     Route: 048
  5. VFEND [Suspect]
     Active Substance: VORICONAZOLE
     Indication: LUNG INFECTION
     Dosage: ONE AND ONE AND A HALF TABLETS IN THE MORNING AND ONE TABLET AT NIGHT
     Route: 048

REACTIONS (3)
  - Lower limb fracture [Recovering/Resolving]
  - Fall [Recovering/Resolving]
  - Femur fracture [Unknown]

NARRATIVE: CASE EVENT DATE: 20160414
